FAERS Safety Report 23788355 (Version 1)
Quarter: 2024Q2

REPORT INFORMATION
  Report Type: Spontaneous
  Country: US (occurrence: None)
  Receive Date: 20240426
  Receipt Date: 20240426
  Transmission Date: 20240715
  Serious: No
  Sender: FDA-Public Use
  Company Number: US-SUPERNUS Pharmaceuticals, Inc.-SUP202401-000221

PATIENT
  Sex: Male

DRUGS (4)
  1. QELBREE [Suspect]
     Active Substance: VILOXAZINE HYDROCHLORIDE
     Indication: Attention deficit hyperactivity disorder
     Dates: start: 20240116
  2. METHYLENE BLUE [Concomitant]
     Active Substance: METHYLENE BLUE
     Dosage: (MILD MOA I)
  3. DMAE [Concomitant]
     Dosage: ENERGY SUPPLEMENT
  4. Andrographis [Concomitant]
     Dosage: ANTI-INFLAMMATORY HERB

REACTIONS (1)
  - Amphetamines positive [Unknown]

NARRATIVE: CASE EVENT DATE: 20240117
